FAERS Safety Report 14762646 (Version 2)
Quarter: 2019Q1

REPORT INFORMATION
  Report Type: Spontaneous
  Country: US (occurrence: US)
  Receive Date: 20180416
  Receipt Date: 20190304
  Transmission Date: 20190417
  Serious: No
  Sender: FDA-Public Use
  Company Number: US-PFIZER INC-2018154122

PATIENT
  Sex: Female
  Weight: 77.98 kg

DRUGS (1)
  1. METHOTREXATE SODIUM. [Suspect]
     Active Substance: METHOTREXATE SODIUM
     Indication: RHEUMATOID ARTHRITIS
     Dosage: 20 MG, WEEKLY, (8 TABLETS OF 2.5 MG ON THURSDAY MORNING)
     Route: 048

REACTIONS (1)
  - Drug intolerance [Unknown]
